FAERS Safety Report 13430171 (Version 1)
Quarter: 2017Q2

REPORT INFORMATION
  Report Type: Spontaneous
  Country: DE (occurrence: DE)
  Receive Date: 20170412
  Receipt Date: 20170412
  Transmission Date: 20170830
  Serious: Yes (Hospitalization, Disabling, Other)
  Sender: FDA-Public Use
  Company Number: DE-AXELLIA-001063

PATIENT
  Age: 49 Year
  Sex: Female
  Weight: 56 kg

DRUGS (23)
  1. ZITHROMAX [Concomitant]
     Active Substance: AZITHROMYCIN DIHYDRATE
     Dosage: DAILY DOSE: 1500 MG MILLGRAM(S) EVERY WEEKS
  2. FERRUM HAUSMANN [Concomitant]
     Active Substance: FERROUS FUMARATE
     Dosage: DAILY DOSE: 20 GTT DROP(S) EVERY DAYS
  3. HUMALOG [Concomitant]
     Active Substance: INSULIN LISPRO
  4. COLOBREATHE [Concomitant]
     Active Substance: COLISTIMETHATE SODIUM
     Dosage: DAILY DOSE: 3 DF DOSAGE FORM EVERY DAYS
  5. RAMIPRIL. [Suspect]
     Active Substance: RAMIPRIL
     Indication: HYPERTENSION
     Dates: start: 20161227
  6. RAMIPRIL. [Suspect]
     Active Substance: RAMIPRIL
     Indication: HYPERTENSION
     Dosage: STARTED 2.5 MG FROM 22-DEC-2016, INCREASED TO 5 MG FROM 27-DEC-2016, THEN TO 7.5 MG IN JAN-2017
     Dates: start: 201701
  7. CEFTOLOZANE [Suspect]
     Active Substance: CEFTOLOZANE
     Indication: PRODUCT USED FOR UNKNOWN INDICATION
     Dates: start: 201612
  8. BUDESONIDE. [Concomitant]
     Active Substance: BUDESONIDE
  9. VALSARTAN. [Suspect]
     Active Substance: VALSARTAN
     Indication: HYPERTENSION
     Dates: start: 201701, end: 20170113
  10. AMLODIPINE [Concomitant]
     Active Substance: AMLODIPINE BESYLATE
     Dosage: DAILY DOSE: 10 MG MILLGRAM(S) EVERY DAYS
  11. ORKAMBI [Concomitant]
     Active Substance: IVACAFTOR\LUMACAFTOR
     Dosage: DAILY DOSE: 4 DF DOSAGE FORM EVERY DAYS
  12. ATROVENT [Concomitant]
     Active Substance: IPRATROPIUM BROMIDE
     Dosage: DAILY DOSE: 12 DF DOSAGE FORM EVERY DAYS
  13. PANZYTRAT 25^000 [Concomitant]
     Dosage: 6-6-6 AND IF REQUIRED
  14. URSOFALK [Concomitant]
     Active Substance: URSODIOL
     Dosage: DAILY DOSE: 750 MG MILLGRAM(S) EVERY DAYS
  15. IDEOS [Concomitant]
     Active Substance: CALCIUM CARBONATE\CHOLECALCIFEROL
     Dosage: DAILY DOSE: 500 MG MILLGRAM(S) EVERY DAYS
  16. SULTANOL DOSIERAEROSOL [Concomitant]
  17. ULTIBRO BREEZHALER [Concomitant]
     Active Substance: GLYCOPYRRONIUM\INDACATEROL
  18. PULMOZYME [Concomitant]
     Active Substance: DORNASE ALFA
     Dosage: DAILY DOSE: 1 DF DOSAGE FORM EVERY DAYS
  19. RAMIPRIL. [Suspect]
     Active Substance: RAMIPRIL
     Indication: HYPERTENSION
     Dates: start: 201701
  20. TOBRAMYCIN. [Suspect]
     Active Substance: TOBRAMYCIN
     Indication: PRODUCT USED FOR UNKNOWN INDICATION
     Dates: start: 201612
  21. VIGANTOLETTEN 1000 [Concomitant]
     Dosage: DAILY DOSE: 2 DF DOSAGE FORM EVERY DAYS
  22. CAYSTON [Concomitant]
     Active Substance: AZTREONAM
     Dosage: DAILY DOSE: 3 DF DOSAGE FORM EVERY DAYS
  23. DEKRISTOL 20000 I.E. [Concomitant]
     Dosage: DAILY DOSE: 1 DF DOSAGE FORM EVERY MONTHS

REACTIONS (1)
  - Renal failure [Not Recovered/Not Resolved]

NARRATIVE: CASE EVENT DATE: 20170113
